FAERS Safety Report 5795479-7 (Version None)
Quarter: 2008Q2

REPORT INFORMATION
  Report Type: 
  Country: None (occurrence: None)
  Receive Date: 20080601
  Receipt Date: 20080121
  Transmission Date: 20081010
  Serious: No
  Sender: FDA-Public Use
  Company Number: US200801004598

PATIENT
  Age: 71 Year
  Sex: Male
  Weight: 87.5 kg

DRUGS (3)
  1. BYETTA [Suspect]
     Dosage: 5 UG, 2/D, SUBCUTANEOUS : 10 UG, 2/D, SUBCUTANEOUS
     Route: 058
     Dates: start: 20070901, end: 20071201
  2. BYETTA [Suspect]
     Dosage: 5 UG, 2/D, SUBCUTANEOUS : 10 UG, 2/D, SUBCUTANEOUS
     Route: 058
     Dates: start: 20071201
  3. ALSA SELTZER [Concomitant]

REACTIONS (5)
  - BLOOD GLUCOSE INCREASED [None]
  - DECREASED APPETITE [None]
  - INCORRECT DOSE ADMINISTERED [None]
  - NAUSEA [None]
  - WEIGHT DECREASED [None]
